FAERS Safety Report 14371957 (Version 1)
Quarter: 2018Q1

REPORT INFORMATION
  Report Type: Spontaneous
  Country: US (occurrence: US)
  Receive Date: 20180109
  Receipt Date: 20180109
  Transmission Date: 20180509
  Serious: Yes (Life-Threatening)
  Sender: FDA-Public Use
  Company Number: None

PATIENT
  Sex: Female
  Weight: 13.05 kg

DRUGS (1)
  1. MIRALAX [Suspect]
     Active Substance: POLYETHYLENE GLYCOL 3350
     Indication: CONSTIPATION
     Dates: start: 20171223, end: 20171225

REACTIONS (4)
  - Respiratory arrest [None]
  - Retching [None]
  - Cyanosis [None]
  - Seizure [None]

NARRATIVE: CASE EVENT DATE: 20171225
